FAERS Safety Report 9705545 (Version 5)
Quarter: 2014Q1

REPORT INFORMATION
  Report Type: Spontaneous
  Country: FR (occurrence: FR)
  Receive Date: 20131122
  Receipt Date: 20140116
  Transmission Date: 20141002
  Serious: Yes (Other)
  Sender: FDA-Public Use
  Company Number: PHHY2013FR129305

PATIENT
  Age: 4 Year
  Sex: Male
  Weight: 28 kg

DRUGS (6)
  1. OMNITROPE [Suspect]
     Indication: GROWTH HORMONE DEFICIENCY
     Dosage: 0.5 MG, QD
     Route: 058
     Dates: start: 201304
  2. OMNITROPE [Suspect]
     Dosage: 1 MG, QD
     Route: 058
     Dates: end: 20131105
  3. OMNITROPE [Suspect]
     Dosage: 0.5 MG, QD
     Route: 058
  4. HYDROCORTISONE [Concomitant]
  5. L-THYROXINE [Concomitant]
  6. MINRIN MELT [Concomitant]

REACTIONS (4)
  - Insulin-like growth factor increased [Unknown]
  - Incorrect dose administered [Unknown]
  - Drug administered in wrong device [Unknown]
  - Overdose [Unknown]
